FAERS Safety Report 7034448-6 (Version None)
Quarter: 2010Q4

REPORT INFORMATION
  Report Type: 
  Country: None (occurrence: None)
  Receive Date: 20101008
  Receipt Date: 20101001
  Transmission Date: 20110411
  Serious: Yes (Death)
  Sender: FDA-Public Use
  Company Number: PHNR2003AU01619

PATIENT
  Sex: Male

DRUGS (3)
  1. CLOZARIL [Suspect]
     Indication: SCHIZOPHRENIA
     Dosage: 300 MG, QD
     Route: 048
     Dates: start: 19970908
  2. EPILIM [Concomitant]
     Indication: EPILEPSY
     Dosage: 500 MG, BID
     Route: 048
     Dates: start: 20040101
  3. MINIPRESS [Concomitant]
     Indication: BENIGN PROSTATIC HYPERPLASIA
     Dosage: 1 MG, BID
     Route: 048
     Dates: start: 20090901

REACTIONS (10)
  - AORTIC DILATATION [None]
  - AORTIC VALVE INCOMPETENCE [None]
  - ATRIAL HYPERTROPHY [None]
  - CARDIAC ARREST [None]
  - CIRCULATORY COLLAPSE [None]
  - HYPOKINESIA [None]
  - MALAISE [None]
  - PAIN IN EXTREMITY [None]
  - VENTRICULAR DYSFUNCTION [None]
  - VENTRICULAR FIBRILLATION [None]
